FAERS Safety Report 5202252-7 (Version None)
Quarter: 2007Q1

REPORT INFORMATION
  Report Type: 
  Country: None (occurrence: None)
  Receive Date: 20070109
  Receipt Date: 20070103
  Transmission Date: 20070707
  Serious: Yes (Other)
  Sender: FDA-Public Use
  Company Number: US-GLAXOSMITHKLINE-A0631648A

PATIENT
  Age: 43 Year
  Sex: Female

DRUGS (5)
  1. LAMICTAL [Suspect]
     Indication: BIPOLAR DISORDER
     Dosage: 25MG PER DAY
     Route: 048
     Dates: start: 20061127
  2. GEODON [Concomitant]
     Indication: BIPOLAR DISORDER
     Dosage: 80MG TWICE PER DAY
     Route: 048
  3. SEROQUEL [Concomitant]
     Dosage: 200MG AT NIGHT
     Route: 048
  4. CLONAZEPAM [Concomitant]
     Route: 048
  5. LEXAPRO [Concomitant]
     Dosage: 20MG PER DAY
     Route: 048

REACTIONS (1)
  - HERPES SIMPLEX [None]
